FAERS Safety Report 19063199 (Version 1)
Quarter: 2021Q1

REPORT INFORMATION
  Report Type: Other
  Country: SA (occurrence: SA)
  Receive Date: 20210326
  Receipt Date: 20210326
  Transmission Date: 20210420
  Serious: Yes (Other)
  Sender: FDA-Public Use
  Company Number: SA-ROCHE-2794771

PATIENT

DRUGS (3)
  1. NIVOLUMAB [Suspect]
     Active Substance: NIVOLUMAB
     Indication: NEOPLASM MALIGNANT
     Route: 065
  2. PEMBROLIZUMAB. [Suspect]
     Active Substance: PEMBROLIZUMAB
     Indication: NEOPLASM MALIGNANT
     Route: 065
  3. ATEZOLIZUMAB. [Suspect]
     Active Substance: ATEZOLIZUMAB
     Indication: NEOPLASM MALIGNANT
     Route: 065

REACTIONS (20)
  - Skin reaction [Unknown]
  - Vomiting [Unknown]
  - Urinary tract infection [Unknown]
  - Thrombocytopenia [Unknown]
  - Pneumonia [Unknown]
  - Colitis [Unknown]
  - Hyperthyroidism [Unknown]
  - Bacterial infection [Unknown]
  - Pneumonitis [Unknown]
  - Arthralgia [Unknown]
  - Nausea [Unknown]
  - Viral infection [Unknown]
  - Acute kidney injury [Unknown]
  - Diarrhoea [Unknown]
  - Fatigue [Unknown]
  - Hypothyroidism [Unknown]
  - Fungal infection [Unknown]
  - Hepatitis [Unknown]
  - Bacteraemia [Unknown]
  - Upper respiratory tract infection [Unknown]
